FAERS Safety Report 22075409 (Version 1)
Quarter: 2023Q1

REPORT INFORMATION
  Report Type: Spontaneous
  Country: FR (occurrence: FR)
  Receive Date: 20230308
  Receipt Date: 20230308
  Transmission Date: 20230418
  Serious: Yes (Life-Threatening, Hospitalization)
  Sender: FDA-Public Use
  Company Number: FR-ROCHE-3294450

PATIENT
  Age: 83 Year
  Sex: Female

DRUGS (14)
  1. METHYLPREDNISOLONE SODIUM SUCCINATE [Suspect]
     Active Substance: METHYLPREDNISOLONE SODIUM SUCCINATE
     Indication: Non-Hodgkin^s lymphoma
     Dosage: UNK
     Route: 065
  2. METHYLPREDNISOLONE SODIUM SUCCINATE [Suspect]
     Active Substance: METHYLPREDNISOLONE SODIUM SUCCINATE
     Dosage: 40 MG
     Route: 065
     Dates: start: 201307
  3. BACTRIM [Suspect]
     Active Substance: SULFAMETHOXAZOLE\TRIMETHOPRIM
     Dosage: 3 DF, FREQ:0.33 WK;
     Route: 048
     Dates: start: 20130704, end: 20130819
  4. MOTILIUM [Suspect]
     Active Substance: DOMPERIDONE
     Dosage: 500 MG, FREQ:12 H;
     Dates: start: 20130814, end: 20130815
  5. CEFUROXIME [Suspect]
     Active Substance: CEFUROXIME
     Indication: Pyrexia
     Dosage: 500 MG
     Dates: start: 20130818
  6. CIPROFLOXACIN [Suspect]
     Active Substance: CIPROFLOXACIN
     Indication: Pyrexia
     Dosage: 500 MG, 1X/DAY
     Route: 048
     Dates: start: 20130818, end: 20130819
  7. MABTHERA [Suspect]
     Active Substance: RITUXIMAB
     Indication: Non-Hodgkin^s lymphoma
     Dosage: 750 MG/M2, 1X/DAY
     Route: 042
     Dates: start: 20130703
  8. MABTHERA [Suspect]
     Active Substance: RITUXIMAB
     Dosage: 750 MG/M2, 1X/DAY
     Route: 042
     Dates: start: 20130731, end: 20130731
  9. BENDAMUSTINE HYDROCHLORIDE [Suspect]
     Active Substance: BENDAMUSTINE HYDROCHLORIDE
     Indication: B-cell lymphoma
     Dosage: ON 01/AUG/2013,RECEIVED MOST RECENT DOSE
     Route: 042
     Dates: start: 20130731, end: 20130801
  10. BENDAMUSTINE HYDROCHLORIDE [Suspect]
     Active Substance: BENDAMUSTINE HYDROCHLORIDE
     Dosage: CYCLIC (2 IN 1 MONTH)
     Route: 042
     Dates: start: 20130703
  11. AERIUS (DESLORATADINE) [Concomitant]
     Active Substance: DESLORATADINE
     Indication: Face oedema
     Dosage: UNK
     Dates: start: 20130802
  12. ATARAX [Concomitant]
     Active Substance: HYDROXYZINE HYDROCHLORIDE
     Dosage: 50 MG
  13. TAGAMET [Concomitant]
     Active Substance: CIMETIDINE
     Dosage: 800 MG
  14. FUROSEMIDE [Concomitant]
     Active Substance: FUROSEMIDE
     Dosage: UNK
     Dates: start: 20130801

REACTIONS (6)
  - Leukopenia [Unknown]
  - Febrile neutropenia [Recovering/Resolving]
  - Pancytopenia [Recovering/Resolving]
  - Toxic skin eruption [Recovered/Resolved]
  - Rash maculo-papular [Unknown]
  - Agranulocytosis [Recovered/Resolved]

NARRATIVE: CASE EVENT DATE: 20130813
